FAERS Safety Report 5055482-1 (Version None)
Quarter: 2006Q3

REPORT INFORMATION
  Report Type: 
  Country: None (occurrence: None)
  Receive Date: 20060717
  Receipt Date: 20060717
  Transmission Date: 20061208
  Serious: Yes (Hospitalization)
  Sender: FDA-Public Use
  Company Number: None

PATIENT
  Age: 67 Year
  Sex: Male
  Weight: 86.1834 kg

DRUGS (7)
  1. ENOXAPARIN SODIUM [Suspect]
     Indication: ACUTE CORONARY SYNDROME
     Dosage: 1 MG /KG SQ BID
     Dates: start: 20060325, end: 20060327
  2. ASPIRIN [Suspect]
     Indication: CORONARY ARTERY BYPASS
     Dosage: 81 MG PO DAILY [CHRONIC]
     Route: 048
  3. METFORMIN [Concomitant]
  4. TOPROL-XL [Concomitant]
  5. VYTORIN [Concomitant]
  6. PLAVIX [Concomitant]
  7. MICARDIS [Concomitant]

REACTIONS (7)
  - ACUTE CORONARY SYNDROME [None]
  - BLOOD UREA INCREASED [None]
  - DIZZINESS [None]
  - DUODENAL ULCER [None]
  - HYPOVOLAEMIA [None]
  - MYOCARDIAL INFARCTION [None]
  - UPPER GASTROINTESTINAL HAEMORRHAGE [None]
